FAERS Safety Report 4455617-5 (Version None)
Quarter: 2004Q3

REPORT INFORMATION
  Report Type: 
  Country: None (occurrence: None)
  Receive Date: 20040922
  Receipt Date: 20040913
  Transmission Date: 20050211
  Serious: Yes (Other)
  Sender: FDA-Public Use
  Company Number: PHFR2004GB03500

PATIENT
  Age: 12 Year
  Sex: Male

DRUGS (4)
  1. RITALIN [Suspect]
     Indication: ATTENTION DEFICIT/HYPERACTIVITY DISORDER
     Dosage: 10 MG, QID
     Route: 048
     Dates: start: 19970101, end: 20040514
  2. STRATTERA [Suspect]
     Indication: ATTENTION DEFICIT/HYPERACTIVITY DISORDER
     Dosage: 10 MG, QD
     Route: 048
     Dates: start: 20040519
  3. STRATTERA [Suspect]
     Dosage: 40 MG, QD
     Route: 048
     Dates: end: 20040701
  4. MELATONIN [Concomitant]
     Indication: INSOMNIA
     Dosage: 2MG/NOCTE
     Route: 048
     Dates: start: 20011202, end: 20040514

REACTIONS (1)
  - NEUTROPENIA [None]
